FAERS Safety Report 7242954-4 (Version None)
Quarter: 2011Q1

REPORT INFORMATION
  Report Type: 
  Country: None (occurrence: None)
  Receive Date: 20110125
  Receipt Date: 20110118
  Transmission Date: 20110831
  Serious: No
  Sender: FDA-Public Use
  Company Number: US-JNJFOC-20110105729

PATIENT
  Sex: Male

DRUGS (4)
  1. INVEGA [Suspect]
     Route: 048
  2. WELLBUTRIN [Concomitant]
     Indication: ILL-DEFINED DISORDER
     Route: 048
  3. INVEGA [Suspect]
     Indication: SCHIZOPHRENIA
     Route: 048
  4. KLONOPIN [Concomitant]
     Indication: ILL-DEFINED DISORDER
     Route: 048

REACTIONS (3)
  - DRUG DOSE OMISSION [None]
  - ASTHENIA [None]
  - JOINT LOCK [None]
